FAERS Safety Report 8475726-3 (Version None)
Quarter: 2012Q2

REPORT INFORMATION
  Report Type: 
  Country: None (occurrence: None)
  Receive Date: 20120628
  Receipt Date: 20120620
  Transmission Date: 20120825
  Serious: Yes (Hospitalization)
  Sender: FDA-Public Use
  Company Number: FR-GLAXOSMITHKLINE-B0809423A

PATIENT
  Sex: Male

DRUGS (3)
  1. CEFTRIAXONE [Concomitant]
     Indication: PROSTATITIS
     Route: 065
     Dates: start: 20120219
  2. DEPAKENE [Concomitant]
     Indication: EPILEPSY
     Dosage: .5UNIT PER DAY
     Route: 065
     Dates: start: 20100901
  3. LAMICTAL [Suspect]
     Indication: EPILEPSY
     Route: 048
     Dates: start: 20120209, end: 20120220

REACTIONS (17)
  - HYPERSENSITIVITY [None]
  - RASH MORBILLIFORM [None]
  - RASH MACULAR [None]
  - HEPATOCELLULAR INJURY [None]
  - DISSEMINATED INTRAVASCULAR COAGULATION [None]
  - CONFUSIONAL STATE [None]
  - NERVOUS SYSTEM DISORDER [None]
  - CHOLESTASIS [None]
  - PSYCHOMOTOR RETARDATION [None]
  - INFLAMMATION [None]
  - ENANTHEMA [None]
  - ALTERED STATE OF CONSCIOUSNESS [None]
  - HYPERTHERMIA [None]
  - HYPONATRAEMIA [None]
  - TOXIC SKIN ERUPTION [None]
  - THROMBOCYTOPENIA [None]
  - RENAL FAILURE ACUTE [None]
